FAERS Safety Report 6448833-4 (Version None)
Quarter: 2009Q4

REPORT INFORMATION
  Report Type: 
  Country: None (occurrence: None)
  Receive Date: 20091119
  Receipt Date: 20091119
  Transmission Date: 20100525
  Serious: No
  Sender: FDA-Public Use
  Company Number: None

PATIENT
  Age: 34 Year
  Sex: Female

DRUGS (2)
  1. BENZTROPINE MESYLATE 2MG TAB [Suspect]
     Indication: PSYCHOTIC DISORDER
     Dosage: 1MG HS PO
     Route: 048
     Dates: start: 20091014
  2. RISPERIDONE [Suspect]
     Indication: PSYCHOTIC DISORDER
     Dosage: 2MG HS PO
     Route: 048
     Dates: start: 20091014

REACTIONS (2)
  - DIZZINESS [None]
  - SEDATION [None]
